FAERS Safety Report 16001134 (Version 1)
Quarter: 2019Q1

REPORT INFORMATION
  Report Type: Spontaneous
  Country: ES (occurrence: ES)
  Receive Date: 20190225
  Receipt Date: 20190225
  Transmission Date: 20190418
  Serious: Yes (Hospitalization)
  Sender: FDA-Public Use
  Company Number: ES-PFIZER INC-2019077324

PATIENT
  Sex: Female

DRUGS (3)
  1. REVOLADE [Suspect]
     Active Substance: ELTROMBOPAG
     Indication: APLASIA
     Dosage: UNK
     Route: 065
     Dates: start: 201810
  2. CYCLOSPORIN [Suspect]
     Active Substance: CYCLOSPORINE
     Indication: APLASIA
     Dosage: UNK
     Route: 065
     Dates: start: 201810
  3. ATGAM [Suspect]
     Active Substance: EQUINE THYMOCYTE IMMUNE GLOBULIN
     Indication: APLASIA
     Dosage: UNK
     Dates: start: 201810

REACTIONS (1)
  - Vaginal haemorrhage [Recovering/Resolving]

NARRATIVE: CASE EVENT DATE: 201810
